FAERS Safety Report 12259596 (Version 1)
Quarter: 2016Q2

REPORT INFORMATION
  Report Type: Spontaneous
  Country: US (occurrence: US)
  Receive Date: 20160412
  Receipt Date: 20160412
  Transmission Date: 20160815
  Serious: No
  Sender: FDA-Public Use
  Company Number: US-SA-2015SA099657

PATIENT
  Age: 73 Year
  Sex: Female

DRUGS (1)
  1. ALLEGRA [Suspect]
     Active Substance: FEXOFENADINE HYDROCHLORIDE
     Dosage: TAKN FROM MONTH AGO
     Route: 048

REACTIONS (9)
  - Headache [Unknown]
  - Insomnia [Unknown]
  - Skin disorder [Unknown]
  - Tremor [Unknown]
  - Feeling jittery [Unknown]
  - Anxiety [Unknown]
  - Malaise [Unknown]
  - Drug administration error [Unknown]
  - Memory impairment [Unknown]
